FAERS Safety Report 10216692 (Version 1)
Quarter: 2014Q2

REPORT INFORMATION
  Report Type: Spontaneous
  Country: US (occurrence: US)
  Receive Date: 20140604
  Receipt Date: 20140604
  Transmission Date: 20141212
  Serious: No
  Sender: FDA-Public Use
  Company Number: US-TEVA-485854USA

PATIENT
  Sex: Female

DRUGS (1)
  1. CLARAVIS [Suspect]
     Indication: ACNE
     Route: 048
     Dates: end: 201403

REACTIONS (5)
  - Dry skin [Unknown]
  - Eczema [Unknown]
  - Dry skin [Unknown]
  - Skin discolouration [Unknown]
  - Rash [Unknown]
